FAERS Safety Report 20480628 (Version 3)
Quarter: 2023Q2

REPORT INFORMATION
  Report Type: Report from Study
  Country: US (occurrence: US)
  Receive Date: 20220216
  Receipt Date: 20230505
  Transmission Date: 20230722
  Serious: Yes (Hospitalization, Other)
  Sender: FDA-Public Use
  Company Number: US-JNJFOC-20220223800

PATIENT
  Age: 38 Year
  Sex: Female
  Weight: 53 kg

DRUGS (8)
  1. SIMPONI [Suspect]
     Active Substance: GOLIMUMAB
     Indication: Colitis ulcerative
     Route: 058
     Dates: start: 20180810, end: 20180810
  2. SIMPONI [Suspect]
     Active Substance: GOLIMUMAB
     Route: 058
     Dates: start: 20180816, end: 20180816
  3. SIMPONI [Suspect]
     Active Substance: GOLIMUMAB
     Route: 058
     Dates: start: 20180822, end: 20181017
  4. SIMPONI [Suspect]
     Active Substance: GOLIMUMAB
     Route: 058
     Dates: start: 20181115, end: 20181122
  5. SIMPONI [Suspect]
     Active Substance: GOLIMUMAB
     Route: 058
     Dates: start: 20181123, end: 20181123
  6. PROGRAF [Concomitant]
     Active Substance: TACROLIMUS
     Dates: start: 20180613
  7. PROGRAF [Concomitant]
     Active Substance: TACROLIMUS
     Dates: start: 201805, end: 20181220
  8. XELJANZ [Concomitant]
     Active Substance: TOFACITINIB CITRATE
     Dates: start: 201901, end: 20220120

REACTIONS (1)
  - Adenocarcinoma of colon [Not Recovered/Not Resolved]

NARRATIVE: CASE EVENT DATE: 20210930
